FAERS Safety Report 7313356-7 (Version None)
Quarter: 2011Q1

REPORT INFORMATION
  Report Type: 
  Country: None (occurrence: None)
  Receive Date: 20110225
  Receipt Date: 20110221
  Transmission Date: 20110831
  Serious: Yes (Life-Threatening)
  Sender: FDA-Public Use
  Company Number: GB-AMGEN-GBRSP2011010342

PATIENT
  Age: 69 Year
  Sex: Female

DRUGS (3)
  1. ENBREL [Suspect]
     Indication: PRODUCT USED FOR UNKNOWN INDICATION
     Dosage: UNK
  2. CYANOCOBALAMIN [Concomitant]
     Dosage: UNK
  3. ASPIRIN [Concomitant]
     Dosage: UNK

REACTIONS (1)
  - BRONCHIAL CARCINOMA [None]
